FAERS Safety Report 11213094 (Version 1)
Quarter: 2015Q2

REPORT INFORMATION
  Report Type: Spontaneous
  Country: IT (occurrence: IT)
  Receive Date: 20150623
  Receipt Date: 20150623
  Transmission Date: 20150821
  Serious: Yes (Hospitalization)
  Sender: FDA-Public Use
  Company Number: IT-HOSPIRA-2568040

PATIENT
  Age: 62 Year
  Sex: Male

DRUGS (2)
  1. METHOTREXATE [Suspect]
     Active Substance: METHOTREXATE
     Indication: NEOPLASM
     Dosage: DAILY
     Route: 042
     Dates: start: 20090610, end: 20090611
  2. CYTARABINE. [Suspect]
     Active Substance: CYTARABINE
     Indication: NEOPLASM
     Dosage: DAILY
     Route: 042
     Dates: start: 20090611, end: 20090612

REACTIONS (2)
  - Sepsis [Recovered/Resolved]
  - Neutropenia [Recovered/Resolved]

NARRATIVE: CASE EVENT DATE: 20090624
